FAERS Safety Report 18846314 (Version 1)
Quarter: 2021Q1

REPORT INFORMATION
  Report Type: Spontaneous
  Country: US (occurrence: US)
  Receive Date: 20210203
  Receipt Date: 20210203
  Transmission Date: 20210419
  Serious: Yes (Hospitalization)
  Sender: FDA-Public Use
  Company Number: None

PATIENT
  Age: 67 Year
  Sex: Male
  Weight: 99.79 kg

DRUGS (1)
  1. APIXABAN (APIXABAN 5MG TAB, UD) [Suspect]
     Active Substance: APIXABAN
     Indication: PULMONARY EMBOLISM
     Route: 048
     Dates: start: 20201014, end: 20201023

REACTIONS (2)
  - Gastritis [None]
  - Gastric haemorrhage [None]

NARRATIVE: CASE EVENT DATE: 20201019
